FAERS Safety Report 6616944-6 (Version None)
Quarter: 2010Q1

REPORT INFORMATION
  Report Type: 
  Country: None (occurrence: None)
  Receive Date: 20100301
  Receipt Date: 20100212
  Transmission Date: 20100710
  Serious: Yes (Hospitalization)
  Sender: FDA-Public Use
  Company Number: DSA_42685_2010

PATIENT
  Age: 61 Year
  Sex: Male

DRUGS (3)
  1. HERBESSER R (HERBESER R - DILTIAZEM HYDROCHLORIDE) (NOT SPECIFIED) [Suspect]
     Indication: ANGINA PECTORIS
     Dosage: (100 MG QD ORAL)
     Route: 048
     Dates: start: 20100107
  2. PLAVIX [Concomitant]
  3. ASPIRIN [Concomitant]

REACTIONS (2)
  - ACUTE GENERALISED EXANTHEMATOUS PUSTULOSIS [None]
  - HEPATIC FUNCTION ABNORMAL [None]
